FAERS Safety Report 13807809 (Version 1)
Quarter: 2017Q3

REPORT INFORMATION
  Report Type: Spontaneous
  Country: GB (occurrence: GB)
  Receive Date: 20170728
  Receipt Date: 20170728
  Transmission Date: 20171127
  Serious: Yes (Other)
  Sender: FDA-Public Use
  Company Number: GB-COVIS PHARMA S.A.R.L.-2017COV00054

PATIENT
  Age: 64 Year
  Sex: Male

DRUGS (8)
  1. NUROFEN [Suspect]
     Active Substance: IBUPROFEN
     Indication: RHEUMATOID ARTHRITIS
     Dosage: 2 DOSAGE UNITS, 1X/DAY
     Dates: end: 20170623
  2. VITAMIN D [Concomitant]
     Active Substance: CHOLECALCIFEROL
  3. DOMPERIDONE [Concomitant]
     Active Substance: DOMPERIDONE
  4. PREDNISOLONE. [Concomitant]
     Active Substance: PREDNISOLONE
  5. FOLIC ACID. [Concomitant]
     Active Substance: FOLIC ACID
  6. MONURIL [Suspect]
     Active Substance: FOSFOMYCIN SODIUM
     Indication: MEDICAL DEVICE SITE JOINT INFECTION
     Dosage: 1 DOSAGE UNITS, UNK
     Route: 048
     Dates: start: 2013
  7. OMEPRAZOLE MAGNESIUM. [Suspect]
     Active Substance: OMEPRAZOLE MAGNESIUM
     Route: 048
  8. ATENOLOL. [Concomitant]
     Active Substance: ATENOLOL

REACTIONS (1)
  - Renal impairment [Recovering/Resolving]

NARRATIVE: CASE EVENT DATE: 20170623
